FAERS Safety Report 23528802 (Version 2)
Quarter: 2024Q2

REPORT INFORMATION
  Report Type: Report from Study
  Country: US (occurrence: US)
  Receive Date: 20240215
  Receipt Date: 20240610
  Transmission Date: 20240716
  Serious: Yes (Other)
  Sender: FDA-Public Use
  Company Number: US-ABBVIE-5636986

PATIENT
  Sex: Male

DRUGS (1)
  1. HUMIRA [Suspect]
     Active Substance: ADALIMUMAB
     Indication: Crohn^s disease
     Dosage: FORM STRENGTH: 40MG?CITRATE FREE
     Route: 058
     Dates: start: 20201029

REACTIONS (7)
  - Internal haemorrhage [Unknown]
  - Unevaluable event [Not Recovered/Not Resolved]
  - Diabetes mellitus [Unknown]
  - Impaired work ability [Not Recovered/Not Resolved]
  - Ulcer [Recovering/Resolving]
  - Proctalgia [Not Recovered/Not Resolved]
  - Hypertension [Unknown]
